FAERS Safety Report 12706849 (Version 2)
Quarter: 2016Q3

REPORT INFORMATION
  Report Type: Spontaneous
  Country: US (occurrence: US)
  Receive Date: 20160901
  Receipt Date: 20160921
  Transmission Date: 20161109
  Serious: No
  Sender: FDA-Public Use
  Company Number: US-BRISTOL-MYERS SQUIBB COMPANY-BMS-2016-071260

PATIENT
  Sex: Female

DRUGS (1)
  1. SPRYCEL [Suspect]
     Active Substance: DASATINIB
     Indication: CHRONIC MYELOID LEUKAEMIA
     Dosage: 100 MG, QD
     Route: 048
     Dates: start: 20160615

REACTIONS (8)
  - Nausea [Unknown]
  - Cough [Unknown]
  - Joint swelling [Unknown]
  - Dyspnoea [Unknown]
  - Laryngitis [Unknown]
  - Rash [Recovering/Resolving]
  - Sunburn [Unknown]
  - Asthenia [Unknown]
